FAERS Safety Report 4945166-X (Version None)
Quarter: 2006Q1

REPORT INFORMATION
  Report Type: 
  Country: None (occurrence: None)
  Receive Date: 20060117
  Receipt Date: 20050803
  Transmission Date: 20060701
  Serious: Yes (Hospitalization)
  Sender: FDA-Public Use
  Company Number: A03200502358

PATIENT
  Age: 80 Year
  Sex: Female
  Weight: 80.7403 kg

DRUGS (9)
  1. PLAVIX [Suspect]
     Indication: CORONARY ARTERY DISEASE
     Dosage: 75 MG QD - ORAL
     Route: 048
     Dates: end: 20050304
  2. ENOXAPARIN SODIUM [Suspect]
     Dosage: MG/KG - SUBCUTANEOUS
     Route: 058
     Dates: end: 20050304
  3. ASPIRIN [Suspect]
     Indication: CORONARY ARTERY DISEASE
     Dosage: 325 MG QD - ORAL
     Route: 048
  4. VALSARTAN [Concomitant]
  5. FUROSEMIDE [Concomitant]
  6. AMLODIPINE BESYLATE [Concomitant]
  7. DIGOXIN [Concomitant]
  8. LEVOFLOXACIN [Concomitant]
  9. TORSEMIDE [Concomitant]

REACTIONS (1)
  - ANAEMIA [None]
